FAERS Safety Report 13862291 (Version 1)
Quarter: 2017Q3

REPORT INFORMATION
  Report Type: Spontaneous
  Country: US (occurrence: US)
  Receive Date: 20170813
  Receipt Date: 20170813
  Transmission Date: 20171127
  Serious: No
  Sender: FDA-Public Use
  Company Number: US-GLAXOSMITHKLINE-US2017120841

PATIENT
  Sex: Female

DRUGS (6)
  1. FLONASE SENSIMIST ALLERGY RELIEF [Suspect]
     Active Substance: FLUTICASONE FUROATE
     Indication: MULTIPLE ALLERGIES
  2. VERAMYST [Suspect]
     Active Substance: FLUTICASONE FUROATE
     Indication: VERTIGO
     Dosage: UNK
  3. FLONASE SENSIMIST ALLERGY RELIEF [Suspect]
     Active Substance: FLUTICASONE FUROATE
     Indication: VERTIGO
     Dosage: UNK
  4. FLONASE SENSIMIST ALLERGY RELIEF [Suspect]
     Active Substance: FLUTICASONE FUROATE
     Indication: MIDDLE EAR EFFUSION
  5. VERAMYST [Suspect]
     Active Substance: FLUTICASONE FUROATE
     Indication: MIDDLE EAR EFFUSION
  6. VERAMYST [Suspect]
     Active Substance: FLUTICASONE FUROATE
     Indication: MULTIPLE ALLERGIES

REACTIONS (5)
  - Vertigo [Unknown]
  - Drug ineffective [Unknown]
  - Drug effective for unapproved indication [Unknown]
  - Product use in unapproved indication [Unknown]
  - Drug ineffective for unapproved indication [Unknown]
